FAERS Safety Report 20698871 (Version 1)
Quarter: 2022Q2

REPORT INFORMATION
  Report Type: Spontaneous
  Country: US (occurrence: US)
  Receive Date: 20220412
  Receipt Date: 20220412
  Transmission Date: 20220720
  Serious: Yes (Hospitalization, Other)
  Sender: FDA-Public Use
  Company Number: US-ALKEM LABORATORIES LIMITED-US-ALKEM-2022-03162

PATIENT
  Age: 67 Year
  Sex: Female

DRUGS (1)
  1. PREGABALIN [Suspect]
     Active Substance: PREGABALIN
     Indication: Radicular pain
     Dosage: 600 MILLIGRAM, TID
     Route: 065

REACTIONS (8)
  - Gait inability [Recovering/Resolving]
  - Delirium [Recovering/Resolving]
  - Dizziness [Unknown]
  - Muscle twitching [Unknown]
  - Diplopia [Unknown]
  - Confusional state [Unknown]
  - Ataxia [Unknown]
  - Myoclonus [Unknown]
